FAERS Safety Report 18199462 (Version 2)
Quarter: 2021Q2

REPORT INFORMATION
  Report Type: Other
  Country: CA (occurrence: CA)
  Receive Date: 20200826
  Receipt Date: 20210402
  Transmission Date: 20210717
  Serious: Yes (Other)
  Sender: FDA-Public Use
  Company Number: CA-COVIS PHARMA B.V.-2020COV00386

PATIENT
  Age: 88 Year
  Sex: Female
  Weight: 58.96 kg

DRUGS (6)
  1. HYLO LUBRICATING EYE DROPS [Concomitant]
  2. OMEPRAZOLE. [Concomitant]
     Active Substance: OMEPRAZOLE
  3. MONOPROST [Concomitant]
     Active Substance: LATANOPROST
  4. OMNARIS [Suspect]
     Active Substance: CICLESONIDE
     Indication: RHINORRHOEA
     Dosage: 200 MG, 2X/DAY (1 OR 2 SPRAYS IN NOSTRILS 2X/DAY)
     Route: 045
     Dates: start: 20200216, end: 20200228
  5. COSOPT [Concomitant]
     Active Substance: DORZOLAMIDE HYDROCHLORIDE\TIMOLOL MALEATE
  6. OMNARIS [Suspect]
     Active Substance: CICLESONIDE
     Indication: UPPER-AIRWAY COUGH SYNDROME
     Dosage: 100 MG, 2X/DAY (1 OR 2 SPRAYS IN NOSTRILS 2X/DAY)
     Route: 045
     Dates: start: 20200216, end: 20200228

REACTIONS (7)
  - Eye irritation [Recovering/Resolving]
  - Eye pain [Recovering/Resolving]
  - Foreign body sensation in eyes [Recovering/Resolving]
  - Erythema of eyelid [Recovering/Resolving]
  - Ocular discomfort [Recovering/Resolving]
  - Dry eye [Recovering/Resolving]
  - Vision blurred [Recovering/Resolving]

NARRATIVE: CASE EVENT DATE: 20200221
